FAERS Safety Report 8500244-3 (Version None)
Quarter: 2012Q3

REPORT INFORMATION
  Report Type: 
  Country: None (occurrence: None)
  Receive Date: 20120710
  Receipt Date: 20120706
  Transmission Date: 20120928
  Serious: Yes (Hospitalization)
  Sender: FDA-Public Use
  Company Number: PHHY2012GB058212

PATIENT
  Age: 87 Year
  Sex: Male

DRUGS (5)
  1. CITALOPRAM HYDROBROMIDE [Suspect]
     Dosage: 50 MG, DAILY
     Route: 048
  2. CITALOPRAM HYDROBROMIDE [Suspect]
     Dosage: 20 MG, DAILY
     Route: 048
     Dates: start: 20120601
  3. CITALOPRAM HYDROBROMIDE [Suspect]
     Dosage: 40 MG, DAILY
     Route: 048
  4. CITALOPRAM HYDROBROMIDE [Suspect]
     Dosage: 20 MG, DAILY
     Route: 048
     Dates: start: 20110901
  5. CITALOPRAM HYDROBROMIDE [Suspect]
     Dosage: 10 MG, DAILY
     Route: 048
     Dates: start: 20100801, end: 20110901

REACTIONS (3)
  - FALL [None]
  - MALAISE [None]
  - OVERDOSE [None]
